FAERS Safety Report 6983259-6 (Version None)
Quarter: 2010Q3

REPORT INFORMATION
  Report Type: 
  Country: None (occurrence: None)
  Receive Date: 20100914
  Receipt Date: 20100723
  Transmission Date: 20110219
  Serious: No
  Sender: FDA-Public Use
  Company Number: US-PFIZER INC-2010092893

PATIENT
  Sex: Female

DRUGS (2)
  1. LYRICA [Suspect]
     Dosage: 75 MG, UNK
     Route: 048
  2. LYRICA [Suspect]
     Dosage: 150 MG, UNK
     Route: 048

REACTIONS (4)
  - BALANCE DISORDER [None]
  - DRUG INEFFECTIVE [None]
  - FEELING DRUNK [None]
  - WRONG TECHNIQUE IN DRUG USAGE PROCESS [None]
